FAERS Safety Report 10628749 (Version 1)
Quarter: 2014Q4

REPORT INFORMATION
  Report Type: Spontaneous
  Country: US (occurrence: None)
  Receive Date: 20141203
  Receipt Date: 20141203
  Transmission Date: 20150529
  Serious: No
  Sender: FDA-Public Use
  Company Number: None

PATIENT
  Age: 28 Year
  Sex: Female
  Weight: 70.31 kg

DRUGS (2)
  1. BUPROPION HCL [Suspect]
     Active Substance: BUPROPION HYDROCHLORIDE
     Indication: DEPRESSION
     Route: 048
  2. BUPROPION HCL [Suspect]
     Active Substance: BUPROPION HYDROCHLORIDE
     Indication: ANXIETY
     Route: 048

REACTIONS (3)
  - Product substitution issue [None]
  - Therapeutic response changed [None]
  - Tinnitus [None]

NARRATIVE: CASE EVENT DATE: 20141004
